FAERS Safety Report 4352290-1 (Version None)
Quarter: 2004Q2

REPORT INFORMATION
  Report Type: 
  Country: None (occurrence: None)
  Receive Date: 20040430
  Receipt Date: 20040107
  Transmission Date: 20050107
  Serious: Yes (Other)
  Sender: FDA-Public Use
  Company Number: 22603(1)

PATIENT
  Age: 43 Year
  Sex: Female

DRUGS (2)
  1. ALDARA [Suspect]
     Indication: SKIN PAPILLOMA
     Dosage: 1 UNSPECIFIED (1 IN 1 DAY(S)), TOPICAL
     Route: 061
     Dates: start: 20010301, end: 20010501
  2. VIVELLE [Concomitant]

REACTIONS (3)
  - ARTHRALGIA [None]
  - JOINT SWELLING [None]
  - RHEUMATOID ARTHRITIS [None]
